FAERS Safety Report 24297325 (Version 1)
Quarter: 2024Q3

REPORT INFORMATION
  Report Type: Spontaneous
  Country: JP (occurrence: JP)
  Receive Date: 20240909
  Receipt Date: 20240909
  Transmission Date: 20241016
  Serious: Yes (Other)
  Sender: ACCORD
  Company Number: JP-Accord-444685

PATIENT
  Age: 71 Year
  Sex: Female

DRUGS (2)
  1. CAPECITABINE [Suspect]
     Active Substance: CAPECITABINE
     Indication: Colorectal cancer stage II
     Dosage: (3,600 MG/DAY) WAS ADMINISTERED FOR 2 WEEKS, FOLLOWED BY A 1-WEEK
     Dates: start: 2020, end: 2020
  2. PILSICAINIDE HYDROCHLORIDE [Concomitant]
     Active Substance: PILSICAINIDE HYDROCHLORIDE
     Indication: Arrhythmia
     Dosage: SINCE THE PREVIOUS YEAR
     Route: 048

REACTIONS (4)
  - Decreased appetite [Unknown]
  - Mesenteric vein thrombosis [Recovered/Resolved]
  - Dehydration [Unknown]
  - Diarrhoea [Unknown]

NARRATIVE: CASE EVENT DATE: 20200101
